FAERS Safety Report 6187573-6 (Version None)
Quarter: 2009Q2

REPORT INFORMATION
  Report Type: 
  Country: None (occurrence: None)
  Receive Date: 20090508
  Receipt Date: 20090423
  Transmission Date: 20091009
  Serious: Yes (Life-Threatening)
  Sender: FDA-Public Use
  Company Number: GB-DEXPHARM-20090592

PATIENT
  Sex: Female

DRUGS (5)
  1. OMEPRAZOLE [Suspect]
     Indication: GASTRIC PH DECREASED
     Dosage: 20 MG MILLIGRAM(S), 1 IN 1 DAY ORAL
     Route: 048
     Dates: start: 20090313, end: 20090321
  2. ACETAMINOPHEN W/ CODEINE [Concomitant]
  3. TEMAZEPAM [Concomitant]
  4. TRAMADOL [Concomitant]
  5. RAMIPRIL [Concomitant]

REACTIONS (3)
  - FEELING COLD [None]
  - HYPOKINESIA [None]
  - MUSCLE SPASMS [None]
